FAERS Safety Report 24126204 (Version 1)
Quarter: 2024Q3

REPORT INFORMATION
  Report Type: Report from Study
  Country: US (occurrence: None)
  Receive Date: 20240723
  Receipt Date: 20240723
  Transmission Date: 20241016
  Serious: Yes (Other)
  Sender: ASTRAZENECA
  Company Number: 2024A163049

PATIENT
  Sex: Female

DRUGS (1)
  1. TRUQAP [Suspect]
     Active Substance: CAPIVASERTIB
     Indication: Breast cancer female
     Route: 048
     Dates: start: 20240510

REACTIONS (6)
  - Fall [Unknown]
  - Pain [Unknown]
  - Abdominal pain upper [Unknown]
  - Dizziness [Unknown]
  - Eating disorder [Unknown]
  - Diarrhoea [Unknown]
